FAERS Safety Report 4973478-2 (Version None)
Quarter: 2006Q2

REPORT INFORMATION
  Report Type: 
  Country: None (occurrence: None)
  Receive Date: 20060414
  Receipt Date: 20060117
  Transmission Date: 20061013
  Serious: Yes (Death, Life-Threatening, Hospitalization)
  Sender: FDA-Public Use
  Company Number: CA-SANOFI-SYNTHELABO-F01200600122

PATIENT
  Sex: Female

DRUGS (11)
  1. OXALIPLATIN [Suspect]
     Indication: COLON CANCER
     Route: 042
     Dates: start: 20050404, end: 20050404
  2. CAPECITABINE [Suspect]
     Dosage: 1500 MG TWICE DAILY FOR 2 WEEKS, Q3W
     Route: 048
     Dates: start: 20050404, end: 20050418
  3. AVASTIN [Suspect]
     Route: 042
     Dates: start: 20050404, end: 20050404
  4. VITAMIN E [Concomitant]
  5. ACTONEL [Concomitant]
  6. CALCIUM GLUCONATE [Concomitant]
  7. VITAMIN D [Concomitant]
  8. FLONASE [Concomitant]
  9. COMBIVENT [Concomitant]
  10. ZOFRAN [Concomitant]
     Dates: start: 20050404
  11. DECADRON [Concomitant]
     Dates: start: 20050404

REACTIONS (10)
  - ABDOMINAL ADHESIONS [None]
  - ABDOMINAL DISTENSION [None]
  - ASPERGILLOSIS [None]
  - COLONIC OBSTRUCTION [None]
  - DEHYDRATION [None]
  - GENERAL PHYSICAL HEALTH DETERIORATION [None]
  - KLEBSIELLA INFECTION [None]
  - RESPIRATORY FAILURE [None]
  - SEPTIC SHOCK [None]
  - THROMBOCYTOPENIA [None]
